FAERS Safety Report 13044296 (Version 1)
Quarter: 2016Q4

REPORT INFORMATION
  Report Type: Spontaneous
  Country: US (occurrence: US)
  Receive Date: 20161219
  Receipt Date: 20161219
  Transmission Date: 20170207
  Serious: Yes (Disabling, Other)
  Sender: FDA-Public Use
  Company Number: None

PATIENT
  Age: 31 Year
  Sex: Female
  Weight: 103.5 kg

DRUGS (23)
  1. TIZANIDANE [Concomitant]
  2. TYLENOL PM [Concomitant]
     Active Substance: ACETAMINOPHEN\DIPHENHYDRAMINE
  3. NEXPLANON [Suspect]
     Active Substance: ETONOGESTREL
     Indication: CONTRACEPTION
     Dosage: QUANTITY:1 ETONOGESTRELIMPANT;OTHER FREQUENCY:EVERY 3 YEARS;?
     Route: 058
     Dates: start: 20160526, end: 20161205
  4. VERAPAMIL [Concomitant]
     Active Substance: VERAPAMIL HYDROCHLORIDE
  5. FLUTICASONE [Concomitant]
     Active Substance: FLUTICASONE\FLUTICASONE PROPIONATE
  6. CHLORD/CLIDI [Concomitant]
  7. MIRENA [Concomitant]
     Active Substance: LEVONORGESTREL
  8. MELATONIN [Concomitant]
     Active Substance: MELATONIN
  9. TOPIRAMATE. [Concomitant]
     Active Substance: TOPIRAMATE
  10. PROBIOTIC [Concomitant]
     Active Substance: PROBIOTICS NOS
  11. HYDROCOD/ACETAM [Concomitant]
  12. ZOFRAN [Concomitant]
     Active Substance: ONDANSETRON HYDROCHLORIDE
  13. HYOSCYAMINE. [Concomitant]
     Active Substance: HYOSCYAMINE
  14. LEVOTHYROXIN [Concomitant]
     Active Substance: LEVOTHYROXINE
  15. VITAMIN B12 [Concomitant]
     Active Substance: CYANOCOBALAMIN
  16. GABAPENTIN. [Concomitant]
     Active Substance: GABAPENTIN
  17. MIRALAX [Concomitant]
     Active Substance: POLYETHYLENE GLYCOL 3350
  18. VITAMIN D3 [Concomitant]
     Active Substance: CHOLECALCIFEROL
  19. VITAMIN C [Concomitant]
     Active Substance: ASCORBIC ACID
  20. OMEPRAZOLE. [Concomitant]
     Active Substance: OMEPRAZOLE
  21. SUMANTRIPTAN [Concomitant]
  22. WOMEN^S ONE A DAY [Concomitant]
  23. GLUCOSAMINE HCL/MEM WITH HYALURONIC ACID [Concomitant]

REACTIONS (6)
  - Migraine [None]
  - Speech disorder [None]
  - Swelling [None]
  - Dyspnoea [None]
  - Irritable bowel syndrome [None]
  - Vertigo [None]

NARRATIVE: CASE EVENT DATE: 20160607
